FAERS Safety Report 4368464-X (Version None)
Quarter: 2004Q2

REPORT INFORMATION
  Report Type: 
  Country: None (occurrence: None)
  Receive Date: 20040528
  Receipt Date: 20040419
  Transmission Date: 20050107
  Serious: Yes (Hospitalization)
  Sender: FDA-Public Use
  Company Number: 2004-DE-02213DE(1)

PATIENT
  Age: 39 Year
  Sex: Male

DRUGS (3)
  1. CATAPRES [Suspect]
     Dosage: 0.75 MG, PO; ONCE
     Route: 048
  2. FUROSEMIDE [Suspect]
     Dosage: 400 MG (40 MG, 1 X 10 TABLETS) PO; ONCE
     Route: 048
  3. BEER [Suspect]
     Dosage: 10 ANZ (NG, 1X10 BOTTLES),PO, ONCE
     Route: 048

REACTIONS (5)
  - ALCOHOL USE [None]
  - BRADYCARDIA [None]
  - HYPOTENSION [None]
  - MULTIPLE DRUG OVERDOSE [None]
  - SUICIDE ATTEMPT [None]
